FAERS Safety Report 5762069-1 (Version None)
Quarter: 2008Q2

REPORT INFORMATION
  Report Type: 
  Country: None (occurrence: None)
  Receive Date: 20080604
  Receipt Date: 20080529
  Transmission Date: 20081010
  Serious: Yes (Hospitalization)
  Sender: FDA-Public Use
  Company Number: 2008AP000349

PATIENT
  Age: 33 Year
  Sex: Female

DRUGS (15)
  1. PAROXETINE HCL [Suspect]
     Indication: DEPRESSION
     Dosage: SEE IMAGE
     Route: 048
     Dates: start: 19981112
  2. PAROXETINE HCL [Suspect]
     Indication: DEPRESSION
     Dosage: SEE IMAGE
     Route: 048
     Dates: start: 20000121
  3. PAROXETINE HCL [Suspect]
     Indication: DEPRESSION
     Dosage: SEE IMAGE
     Route: 048
     Dates: start: 20020708
  4. PAROXETINE HCL [Suspect]
     Indication: DEPRESSION
     Dosage: SEE IMAGE
     Route: 048
     Dates: start: 20030214
  5. PAROXETINE HCL [Suspect]
     Indication: DEPRESSION
     Dosage: SEE IMAGE
     Route: 048
     Dates: start: 20030616
  6. PAROXETINE HCL [Suspect]
     Indication: DEPRESSION
     Dosage: SEE IMAGE
     Route: 048
     Dates: start: 20030922
  7. PAROXETINE HCL [Suspect]
     Indication: DEPRESSION
     Dosage: SEE IMAGE
     Route: 048
     Dates: start: 20040202
  8. ALCOHOL (ETHANOL) [Concomitant]
  9. CITALOPRAM HYDROBROMIDE [Concomitant]
  10. FLUOXETINE HCL [Concomitant]
  11. LOFEPRAMINE (LOFEPRAMINE) [Concomitant]
  12. NICOTINE [Concomitant]
  13. TRIFLUOPERAZINE HYDROCHLORIDE (TRIFLUOPERAZINE HYDROCHLORIDE) [Concomitant]
  14. BUPROPION HYDROCHLORIDE [Concomitant]
  15. MINOCYLCINE (MINOCYLCINE) [Concomitant]

REACTIONS (13)
  - ALCOHOL USE [None]
  - CONDITION AGGRAVATED [None]
  - DEPRESSED MOOD [None]
  - DEPRESSION [None]
  - FEELING ABNORMAL [None]
  - INCORRECT DOSE ADMINISTERED [None]
  - IRON DEFICIENCY ANAEMIA [None]
  - MOOD SWINGS [None]
  - STRESS [None]
  - SUICIDAL IDEATION [None]
  - SWELLING FACE [None]
  - TREATMENT NONCOMPLIANCE [None]
  - WITHDRAWAL SYNDROME [None]
